FAERS Safety Report 13345607 (Version 1)
Quarter: 2017Q1

REPORT INFORMATION
  Report Type: Spontaneous
  Country: SE (occurrence: SE)
  Receive Date: 20170317
  Receipt Date: 20170317
  Transmission Date: 20170428
  Serious: Yes (Hospitalization, Other)
  Sender: FDA-Public Use
  Company Number: SE-BAXTER-2017BAX011524

PATIENT
  Age: 79 Year
  Sex: Female

DRUGS (21)
  1. SENDOXAN 50 MG DRAGERAD TABLETT [Suspect]
     Active Substance: CYCLOPHOSPHAMIDE
     Dosage: FURTHER REDUCED DOSAGE
     Route: 048
  2. LEVAXIN [Concomitant]
     Active Substance: LEVOTHYROXINE SODIUM
     Indication: PRODUCT USED FOR UNKNOWN INDICATION
     Route: 065
  3. DELTISON [Concomitant]
     Active Substance: PREDNISONE
     Indication: PRODUCT USED FOR UNKNOWN INDICATION
     Route: 065
  4. MYCOSTATIN [Concomitant]
     Active Substance: NYSTATIN
     Indication: PRODUCT USED FOR UNKNOWN INDICATION
     Route: 065
  5. SENDOXAN 50 MG DRAGERAD TABLETT [Suspect]
     Active Substance: CYCLOPHOSPHAMIDE
     Dosage: REDUCED DOSAGE
     Route: 048
  6. SERTRALINE [Concomitant]
     Active Substance: SERTRALINE HYDROCHLORIDE
     Indication: PRODUCT USED FOR UNKNOWN INDICATION
     Route: 065
  7. LOSARTAN BLUEFISH [Concomitant]
     Active Substance: LOSARTAN
     Indication: PRODUCT USED FOR UNKNOWN INDICATION
     Route: 065
  8. SENDOXAN 50 MG DRAGERAD TABLETT [Suspect]
     Active Substance: CYCLOPHOSPHAMIDE
     Route: 048
     Dates: start: 20150714
  9. FLUDARA [Suspect]
     Active Substance: FLUDARABINE PHOSPHATE
     Indication: CHRONIC LYMPHOCYTIC LEUKAEMIA
     Dosage: 50 MG/DAG
     Route: 048
     Dates: start: 20150409, end: 20150412
  10. FLUDARA [Suspect]
     Active Substance: FLUDARABINE PHOSPHATE
     Dosage: FURTHER REDUCED DOSAGE
     Route: 048
  11. FLUDARA [Suspect]
     Active Substance: FLUDARABINE PHOSPHATE
     Dosage: LAST COURSE
     Route: 048
     Dates: start: 20150714
  12. FLUDARA [Suspect]
     Active Substance: FLUDARABINE PHOSPHATE
     Dosage: DOSE RE-INTRODUCED
     Route: 048
  13. ESIDREX [Concomitant]
     Active Substance: HYDROCHLOROTHIAZIDE
     Indication: PRODUCT USED FOR UNKNOWN INDICATION
     Route: 065
  14. SENDOXAN 50 MG DRAGERAD TABLETT [Suspect]
     Active Substance: CYCLOPHOSPHAMIDE
     Dosage: DOSE RE-INTRODUCED
     Route: 048
  15. FLUDARA [Suspect]
     Active Substance: FLUDARABINE PHOSPHATE
     Dosage: REDUCED DOSAGE
     Route: 048
  16. ALLOPURINOL NORDIC DRUGS [Concomitant]
     Indication: PRODUCT USED FOR UNKNOWN INDICATION
     Route: 065
  17. SENDOXAN 50 MG DRAGERAD TABLETT [Suspect]
     Active Substance: CYCLOPHOSPHAMIDE
     Indication: CHRONIC LYMPHOCYTIC LEUKAEMIA
     Dosage: 350 MG/DAG
     Route: 048
     Dates: start: 20150409, end: 20150412
  18. EUSAPRIM FORTE [Concomitant]
     Active Substance: SULFAMETHOXAZOLE\TRIMETHOPRIM
     Indication: PRODUCT USED FOR UNKNOWN INDICATION
     Route: 065
  19. OESTRING [Concomitant]
     Active Substance: ESTRADIOL
     Indication: PRODUCT USED FOR UNKNOWN INDICATION
     Route: 065
  20. METOPROLOL ORION [Concomitant]
     Active Substance: METOPROLOL
     Indication: PRODUCT USED FOR UNKNOWN INDICATION
     Route: 065
  21. TROMBYL [Concomitant]
     Active Substance: ASPIRIN
     Indication: PRODUCT USED FOR UNKNOWN INDICATION
     Route: 065

REACTIONS (3)
  - Agranulocytosis [Recovered/Resolved]
  - Lymphocytosis [Unknown]
  - Disease progression [Unknown]

NARRATIVE: CASE EVENT DATE: 201504
